FAERS Safety Report 7379070-7 (Version None)
Quarter: 2011Q1

REPORT INFORMATION
  Report Type: 
  Country: None (occurrence: None)
  Receive Date: 20110328
  Receipt Date: 20110328
  Transmission Date: 20110831
  Serious: Yes (Death, Other)
  Sender: FDA-Public Use
  Company Number: US-ROXANE LABORATORIES, INC.-2011-RO-00273RO

PATIENT
  Sex: Male
  Weight: 54 kg

DRUGS (2)
  1. METHADONE [Suspect]
  2. MORPHINE [Suspect]

REACTIONS (3)
  - DRUG DIVERSION [None]
  - DRUG SCREEN POSITIVE [None]
  - TOXICITY TO VARIOUS AGENTS [None]
